FAERS Safety Report 9175990 (Version 1)
Quarter: 2013Q1

REPORT INFORMATION
  Report Type: Spontaneous
  Country: AU (occurrence: AU)
  Receive Date: 20130320
  Receipt Date: 20130320
  Transmission Date: 20140127
  Serious: Yes (Other)
  Sender: FDA-Public Use
  Company Number: AU-ELI_LILLY_AND_COMPANY-AU201303005485

PATIENT
  Sex: Female

DRUGS (6)
  1. BYETTA [Suspect]
     Indication: TYPE 2 DIABETES MELLITUS
     Dosage: 5 UG, BID
     Dates: start: 20130206, end: 20130215
  2. GLICLAZIDE [Concomitant]
     Dosage: 60 MG, BID
  3. METFORMIN [Concomitant]
     Dosage: 1 G, QD
  4. MOBIC [Concomitant]
     Dosage: 7.5 MG, QD
  5. PANADOL OSTEO [Concomitant]
     Dosage: 665 MG, UNK
  6. TRAMADOL [Concomitant]
     Dosage: 50 MG, QID

REACTIONS (1)
  - Haematemesis [Recovered/Resolved]
